FAERS Safety Report 7636110-5 (Version None)
Quarter: 2011Q3

REPORT INFORMATION
  Report Type: 
  Country: None (occurrence: None)
  Receive Date: 20110726
  Receipt Date: 20110715
  Transmission Date: 20111222
  Serious: Yes (Hospitalization, Other)
  Sender: FDA-Public Use
  Company Number: US-BAXTER-2011BH023397

PATIENT
  Age: 93 Year
  Sex: Female

DRUGS (3)
  1. FENTANYL CITRATE [Suspect]
     Route: 042
     Dates: start: 20110612, end: 20110612
  2. FENTANYL CITRATE [Suspect]
     Indication: AGITATION
     Route: 042
     Dates: start: 20110612, end: 20110612
  3. FENTANYL CITRATE [Suspect]
     Route: 042
     Dates: end: 20110617

REACTIONS (7)
  - DEPRESSED LEVEL OF CONSCIOUSNESS [None]
  - DISORIENTATION [None]
  - CEREBRAL HAEMORRHAGE [None]
  - CONVULSION [None]
  - OVERDOSE [None]
  - ASTHENIA [None]
  - BRAIN INJURY [None]
